FAERS Safety Report 25670507 (Version 1)
Quarter: 2025Q3

REPORT INFORMATION
  Report Type: Spontaneous
  Country: US (occurrence: US)
  Receive Date: 20250812
  Receipt Date: 20250812
  Transmission Date: 20251020
  Serious: No
  Sender: ROCHE
  Company Number: US-ROCHE-10000359874

PATIENT
  Sex: Female

DRUGS (1)
  1. OCREVUS [Suspect]
     Active Substance: OCRELIZUMAB
     Indication: Multiple sclerosis
     Dosage: SDV- SINGLE DOSE VIAL STRENGTH: 300 MG/10 ML
     Route: 042
     Dates: start: 202308

REACTIONS (2)
  - Pain [Unknown]
  - Fatigue [Unknown]
